FAERS Safety Report 7717417-X (Version None)
Quarter: 2011Q3

REPORT INFORMATION
  Report Type: 
  Country: None (occurrence: None)
  Receive Date: 20110830
  Receipt Date: 20110311
  Transmission Date: 20111222
  Serious: No
  Sender: FDA-Public Use
  Company Number: US-MYLANLABS-2011S1005416

PATIENT
  Age: 8 Decade
  Sex: Male

DRUGS (4)
  1. TEMAZEPAM [Suspect]
     Indication: INSOMNIA
     Route: 048
  2. ASPIRIN [Concomitant]
  3. LOPRESSOR [Concomitant]
  4. LOTREL [Concomitant]

REACTIONS (1)
  - FEELING ABNORMAL [None]
